FAERS Safety Report 9191173 (Version 8)
Quarter: 2013Q2

REPORT INFORMATION
  Report Type: Spontaneous
  Country: CO (occurrence: CO)
  Receive Date: 20130326
  Receipt Date: 20130522
  Transmission Date: 20140414
  Serious: Yes (Other)
  Sender: FDA-Public Use
  Company Number: CO-VERTEX PHARMACEUTICALS INC.-2013-001953

PATIENT
  Age: 73 Year
  Sex: Female
  Weight: 65 kg

DRUGS (12)
  1. INCIVO [Suspect]
     Indication: HEPATITIS C
     Dosage: 750 MG, TID
     Route: 048
     Dates: start: 20130108, end: 20130401
  2. FUROSEMIDE [Suspect]
     Indication: DIURETIC THERAPY
     Dosage: DOSAGE FORM: TABLET
     Route: 048
  3. RIBAVIRIN [Concomitant]
     Indication: HEPATITIS C
     Dosage: UNK, TID
     Route: 065
  4. RIBAVIRIN [Concomitant]
     Dosage: DOSAGE FORM: UNSPECIFIED
     Route: 065
     Dates: start: 20130108
  5. PEGINTERFERON ALFA [Concomitant]
     Indication: HEPATITIS C
     Dosage: DOSAGE FORM: UNSPECIFIED
     Route: 065
     Dates: start: 20130108
  6. LEVOTHYROXINE [Concomitant]
     Indication: HYPOTHYROIDISM
     Dosage: DOSAGE FORM: UNSPECIFIED
  7. LEVOTHYROXINE [Concomitant]
     Dosage: DOSAGE FORM: UNSPECIFIED
     Route: 065
  8. LEVOTHYROXINE [Concomitant]
     Dosage: DOSAGE FORM: UNSPECIFIED
     Route: 065
  9. LEVOTHYROXINE [Concomitant]
     Dosage: DOSAGE FORM: UNSPECIFIED, LEVOTHYROXINE^S DOSAGE SCHEDULING TO: 100 MCG, ONE DAY AND 150 MCG, THE NE
     Route: 065
  10. AMLODIPINE [Concomitant]
     Indication: HYPERTENSION
     Dosage: UNK UNK, QD
     Route: 065
  11. CLONAZEPAM [Concomitant]
     Indication: PRODUCT USED FOR UNKNOWN INDICATION
     Dosage: 3 DF, QD
     Route: 065
  12. FOLIC ACID [Concomitant]
     Indication: VITAMIN SUPPLEMENTATION
     Dosage: DOSAGE FORM: TABLET
     Route: 048

REACTIONS (24)
  - Fluid retention [Unknown]
  - Influenza [Not Recovered/Not Resolved]
  - Dizziness [Unknown]
  - Feeling hot [Recovered/Resolved]
  - Abdominal pain [Recovered/Resolved]
  - Anuria [Unknown]
  - Pyrexia [Not Recovered/Not Resolved]
  - Stomatitis [Unknown]
  - Muscular weakness [Recovered/Resolved]
  - Diarrhoea [Recovered/Resolved]
  - Anaemia [Unknown]
  - Hormone level abnormal [Unknown]
  - Chills [Not Recovered/Not Resolved]
  - Fatigue [Unknown]
  - Depression [Unknown]
  - Malaise [Unknown]
  - Asthenia [Not Recovered/Not Resolved]
  - Oropharyngeal pain [Not Recovered/Not Resolved]
  - Rhinorrhoea [Not Recovered/Not Resolved]
  - Anxiety [Unknown]
  - Eye swelling [Unknown]
  - Vomiting [Unknown]
  - Nausea [Unknown]
  - Local swelling [Unknown]
